FAERS Safety Report 23027534 (Version 1)
Quarter: 2023Q4

REPORT INFORMATION
  Report Type: Spontaneous
  Country: US (occurrence: US)
  Receive Date: 20231004
  Receipt Date: 20231004
  Transmission Date: 20240109
  Serious: No
  Sender: FDA-Public Use
  Company Number: US-SA-SAC20230928001350

PATIENT
  Age: 29 Year
  Sex: Male

DRUGS (1)
  1. DUPIXENT [Suspect]
     Active Substance: DUPILUMAB
     Indication: Eczema
     Dosage: 300 MG, QOW
     Route: 058
     Dates: start: 20230811

REACTIONS (7)
  - Joint dislocation [Unknown]
  - Localised infection [Unknown]
  - Skin discharge [Unknown]
  - Erythema [Unknown]
  - Chronic rhinosinusitis without nasal polyps [Unknown]
  - Condition aggravated [Unknown]
  - Eczema [Unknown]

NARRATIVE: CASE EVENT DATE: 20230101
